FAERS Safety Report 9163060 (Version 2)
Quarter: 2013Q2

REPORT INFORMATION
  Report Type: Spontaneous
  Country: US (occurrence: US)
  Receive Date: 20130314
  Receipt Date: 20130614
  Transmission Date: 20140414
  Serious: No
  Sender: FDA-Public Use
  Company Number: US-B.I. PHARMACEUTICALS,INC./RIDGEFIELD-2013-BI-06636BP

PATIENT
  Sex: Female

DRUGS (2)
  1. SPIRIVA [Suspect]
     Indication: SEASONAL ALLERGY
     Dosage: 18 MCG
     Route: 055
     Dates: start: 2012, end: 2012
  2. SPIRIVA [Suspect]
     Indication: TOBACCO USER
     Dosage: 18 MCG
     Route: 055
     Dates: start: 201302

REACTIONS (4)
  - Dyspnoea [Recovered/Resolved]
  - Seasonal allergy [Recovered/Resolved]
  - Intentional overdose [Recovered/Resolved]
  - Product quality issue [Unknown]
